FAERS Safety Report 9032181 (Version 1)
Quarter: 2013Q1

REPORT INFORMATION
  Report Type: Spontaneous
  Country: CH (occurrence: CH)
  Receive Date: 20130122
  Receipt Date: 20130122
  Transmission Date: 20140127
  Serious: Yes (Hospitalization)
  Sender: FDA-Public Use
  Company Number: CH-PFIZER INC-2013024319

PATIENT
  Age: 72 Year
  Sex: Male

DRUGS (8)
  1. CORDARONE [Suspect]
     Dosage: 200 MG, DAILY
     Route: 048
     Dates: start: 2011, end: 20121213
  2. XARELTO [Interacting]
     Dosage: 20 MG, DAILY
     Route: 048
     Dates: start: 20121001, end: 20121217
  3. ASPIRIN CARDIO [Interacting]
     Dosage: 100 MG, DAILY
     Route: 048
     Dates: end: 20121213
  4. BELOC [Concomitant]
     Dosage: UNK
     Dates: end: 20121213
  5. ROSUVASTATIN [Concomitant]
     Dosage: UNK
     Dates: end: 20121213
  6. LOPERAMIDE [Concomitant]
     Dosage: UNK
     Dates: end: 20121213
  7. PANTOPRAZOLE [Concomitant]
     Dosage: UNK
     Dates: end: 20121213
  8. SOMNIUM (DIPHENHYDRAMINE HYDROCHLORIDE/LORAZEPAM) [Concomitant]
     Dosage: UNK
     Dates: end: 20121213

REACTIONS (4)
  - Drug interaction [Unknown]
  - Gastrointestinal haemorrhage [Unknown]
  - Haemorrhagic anaemia [Not Recovered/Not Resolved]
  - Melaena [Unknown]
